FAERS Safety Report 6446042-6 (Version None)
Quarter: 2009Q4

REPORT INFORMATION
  Report Type: 
  Country: None (occurrence: None)
  Receive Date: 20091119
  Receipt Date: 20090923
  Transmission Date: 20100525
  Serious: No
  Sender: FDA-Public Use
  Company Number: A0808681A

PATIENT
  Age: 42 Year
  Sex: Female

DRUGS (4)
  1. WELLBUTRIN SR [Suspect]
     Indication: DEPRESSION
     Dosage: 400MG PER DAY
     Route: 048
     Dates: start: 20090823
  2. SYNTHROID [Concomitant]
  3. CYMBALTA [Concomitant]
  4. TOPAMAX [Concomitant]

REACTIONS (4)
  - AGITATION [None]
  - ASTHENIA [None]
  - DRUG INEFFECTIVE [None]
  - WEIGHT INCREASED [None]
